FAERS Safety Report 21221474 (Version 1)
Quarter: 2022Q3

REPORT INFORMATION
  Report Type: Spontaneous
  Country: US (occurrence: None)
  Receive Date: 20220816
  Receipt Date: 20220816
  Transmission Date: 20221026
  Serious: Yes (Death)
  Sender: FDA-Public Use
  Company Number: None

PATIENT
  Age: 70 Year
  Sex: Male

DRUGS (2)
  1. TACROLIMUS [Suspect]
     Active Substance: TACROLIMUS
     Indication: Lung transplant
     Dosage: OTHER FREQUENCY : 2 IN AM 1 PM;?
     Route: 048
     Dates: start: 20210503, end: 20220707
  2. MYCOPHENOLIC ACID [Suspect]
     Active Substance: MYCOPHENOLIC ACID
     Indication: Lung transplant
     Dosage: OTHER FREQUENCY : 1 T BID;?
     Route: 048
     Dates: start: 20211209, end: 20220411

REACTIONS (1)
  - Death [None]

NARRATIVE: CASE EVENT DATE: 20220808
